FAERS Safety Report 5272228-2 (Version None)
Quarter: 2007Q1

REPORT INFORMATION
  Report Type: 
  Country: None (occurrence: None)
  Receive Date: 20070322
  Receipt Date: 20070305
  Transmission Date: 20070707
  Serious: No
  Sender: FDA-Public Use
  Company Number: US-GLAXOSMITHKLINE-A0640438A

PATIENT
  Age: 49 Year
  Sex: Female

DRUGS (8)
  1. AVANDARYL [Suspect]
     Dosage: .5TAB PER DAY
     Route: 048
     Dates: start: 20070201, end: 20070304
  2. REGLAN [Suspect]
     Dosage: 10MG FOUR TIMES PER DAY
     Dates: start: 20070204, end: 20070214
  3. XANAX [Concomitant]
  4. NAVANE [Concomitant]
  5. COGENTIN [Concomitant]
  6. VISTARIL [Concomitant]
  7. MYRRH [Concomitant]
  8. ASPIRIN [Concomitant]

REACTIONS (10)
  - ABDOMINAL PAIN UPPER [None]
  - BLOOD GLUCOSE DECREASED [None]
  - CHEST PAIN [None]
  - CONSTIPATION [None]
  - DIZZINESS [None]
  - DRUG ADMINISTRATION ERROR [None]
  - MIDDLE INSOMNIA [None]
  - MUSCULAR WEAKNESS [None]
  - NAUSEA [None]
  - TREMOR [None]
